FAERS Safety Report 15348658 (Version 1)
Quarter: 2018Q3

REPORT INFORMATION
  Report Type: Spontaneous
  Country: IN (occurrence: IN)
  Receive Date: 20180904
  Receipt Date: 20180904
  Transmission Date: 20181010
  Serious: Yes (Hospitalization, Other)
  Sender: FDA-Public Use
  Company Number: IN-009507513-1809IND000731

PATIENT
  Age: 78 Year
  Sex: Male

DRUGS (2)
  1. PEMBROLIZUMAB. [Suspect]
     Active Substance: PEMBROLIZUMAB
     Indication: METASTASES TO BONE
  2. PEMBROLIZUMAB. [Suspect]
     Active Substance: PEMBROLIZUMAB
     Indication: METASTATIC MALIGNANT MELANOMA
     Dosage: UNK

REACTIONS (12)
  - White blood cell count increased [Unknown]
  - Muscular weakness [Unknown]
  - Eyelid ptosis [Unknown]
  - Dysphagia [Unknown]
  - Blood creatine phosphokinase increased [Unknown]
  - Dysarthria [Unknown]
  - Myalgia [Unknown]
  - Facial paresis [Unknown]
  - Respiratory failure [Unknown]
  - Bulbar palsy [Unknown]
  - Necrotising myositis [Unknown]
  - Ophthalmoplegia [Unknown]
